FAERS Safety Report 12851594 (Version 1)
Quarter: 2016Q4

REPORT INFORMATION
  Report Type: Spontaneous
  Country: US (occurrence: US)
  Receive Date: 20161017
  Receipt Date: 20161017
  Transmission Date: 20170207
  Serious: No
  Sender: FDA-Public Use
  Company Number: US-JNJFOC-20160815101

PATIENT
  Sex: Male

DRUGS (12)
  1. ZINC [Concomitant]
     Active Substance: ZINC\ZINC CHLORIDE
  2. COQ10 [Suspect]
     Active Substance: UBIDECARENONE
     Indication: PRODUCT USED FOR UNKNOWN INDICATION
  3. TRAMADOL. [Concomitant]
     Active Substance: TRAMADOL
  4. RITUXAN [Concomitant]
     Active Substance: RITUXIMAB
  5. LASIX [Concomitant]
     Active Substance: FUROSEMIDE
  6. OMEPRAZOLE. [Concomitant]
     Active Substance: OMEPRAZOLE
  7. IMBRUVICA [Suspect]
     Active Substance: IBRUTINIB
     Indication: CHRONIC LYMPHOCYTIC LEUKAEMIA
     Route: 065
     Dates: start: 20140701, end: 201607
  8. POTASSIUM [Concomitant]
     Active Substance: POTASSIUM
  9. VITAMIN D [Concomitant]
     Active Substance: CHOLECALCIFEROL
  10. LECITHIN [Concomitant]
     Active Substance: LECITHIN
  11. CEPHALEXINE [Concomitant]
     Active Substance: CEPHALEXIN
  12. VITAMIN B12 [Concomitant]
     Active Substance: CYANOCOBALAMIN

REACTIONS (1)
  - Blood count abnormal [Unknown]
